FAERS Safety Report 4836341-3 (Version None)
Quarter: 2005Q4

REPORT INFORMATION
  Report Type: 
  Country: None (occurrence: None)
  Receive Date: 20051121
  Receipt Date: 20051121
  Transmission Date: 20060501
  Serious: Yes (Other)
  Sender: FDA-Public Use
  Company Number: None

PATIENT
  Age: 49 Year
  Sex: Female
  Weight: 77.1115 kg

DRUGS (2)
  1. FLUOXETINE [Suspect]
     Indication: DEPRESSION
     Dosage: 10MG    DAILY   PO
     Route: 048
  2. FLUOXETINE [Suspect]
     Indication: DIVORCED
     Dosage: 10MG    DAILY   PO
     Route: 048

REACTIONS (17)
  - ABNORMAL BEHAVIOUR [None]
  - ANGER [None]
  - ARTHRALGIA [None]
  - BEDRIDDEN [None]
  - CRYING [None]
  - DEPRESSED MOOD [None]
  - DISTURBANCE IN ATTENTION [None]
  - DRUG EFFECT DECREASED [None]
  - DRUG WITHDRAWAL SYNDROME [None]
  - FEELING HOT AND COLD [None]
  - HYPERACUSIS [None]
  - HYPOAESTHESIA [None]
  - MUSCULOSKELETAL STIFFNESS [None]
  - NECK PAIN [None]
  - PAIN IN EXTREMITY [None]
  - SUICIDAL IDEATION [None]
  - VISION BLURRED [None]
